FAERS Safety Report 4807535-8 (Version None)
Quarter: 2005Q4

REPORT INFORMATION
  Report Type: 
  Country: None (occurrence: None)
  Receive Date: 20051024
  Receipt Date: 20050921
  Transmission Date: 20060501
  Serious: Yes (Hospitalization)
  Sender: FDA-Public Use
  Company Number: FR-ROCHE-418653

PATIENT
  Age: 48 Year
  Sex: Male
  Weight: 62 kg

DRUGS (5)
  1. FUZEON [Suspect]
     Dosage: REPORTED AS INJECTABLE SOLUTION.
     Route: 058
     Dates: start: 20040915
  2. TELZIR [Suspect]
     Indication: DRUG USE FOR UNKNOWN INDICATION
     Route: 048
     Dates: start: 20040915
  3. ZIAGEN [Suspect]
     Indication: DRUG USE FOR UNKNOWN INDICATION
     Route: 048
     Dates: start: 20040915
  4. EPIVIR [Suspect]
     Indication: DRUG USE FOR UNKNOWN INDICATION
     Route: 048
     Dates: start: 20040915
  5. NORVIR [Suspect]
     Indication: DRUG USE FOR UNKNOWN INDICATION
     Route: 048
     Dates: start: 20040915

REACTIONS (2)
  - OSTEOMYELITIS [None]
  - OSTEONECROSIS [None]
